FAERS Safety Report 8786955 (Version 2)
Quarter: 2013Q1

REPORT INFORMATION
  Report Type: Spontaneous
  Country: US (occurrence: US)
  Receive Date: 20120914
  Receipt Date: 20130220
  Transmission Date: 20140127
  Serious: No
  Sender: FDA-Public Use
  Company Number: US-009507513-1209USA003812

PATIENT
  Age: 25 Year
  Sex: Male

DRUGS (3)
  1. TEMOZOLOMIDE [Suspect]
     Dosage: 350 MG DAILY FOR 5 DAYS
     Route: 048
     Dates: start: 20110322
  2. CABERGOLINE [Concomitant]
     Dosage: 1 MG, TIW
  3. CABERGOLINE [Concomitant]
     Dosage: 1 MG, QD

REACTIONS (1)
  - Drug ineffective [Unknown]
